FAERS Safety Report 7188440-1 (Version None)
Quarter: 2010Q4

REPORT INFORMATION
  Report Type: 
  Country: None (occurrence: None)
  Receive Date: 20101222
  Receipt Date: 20100924
  Transmission Date: 20110411
  Serious: No
  Sender: FDA-Public Use
  Company Number: US-MYLANLABS-2010S1017807

PATIENT
  Age: 71 Year
  Sex: Female

DRUGS (2)
  1. ANASTROZOLE [Suspect]
     Indication: BREAST CANCER
     Route: 048
     Dates: start: 20100920
  2. AREDIA [Concomitant]

REACTIONS (2)
  - ASTHENIA [None]
  - NAUSEA [None]
